FAERS Safety Report 9197169 (Version 2)
Quarter: 2013Q3

REPORT INFORMATION
  Report Type: Spontaneous
  Country: US (occurrence: US)
  Receive Date: 20130328
  Receipt Date: 20130905
  Transmission Date: 20140515
  Serious: Yes (Other)
  Sender: FDA-Public Use
  Company Number: US-BAYER-2013-036867

PATIENT
  Age: 23 Year
  Sex: Female

DRUGS (10)
  1. OCELLA [Suspect]
  2. CHANTIX [Concomitant]
  3. DIAMOX [Concomitant]
     Dosage: 1000 MG, TWICE A DAY
  4. MAXALT [Concomitant]
  5. VALTREX [Concomitant]
  6. TORADOL [Concomitant]
  7. VALIUM [Concomitant]
  8. DEXAMETHASONE [Concomitant]
  9. REGLAN [Concomitant]
  10. PREDNISONE [Concomitant]

REACTIONS (1)
  - Intracranial venous sinus thrombosis [None]
